FAERS Safety Report 17967384 (Version 2)
Quarter: 2020Q3

REPORT INFORMATION
  Report Type: Report from Study
  Country: IT (occurrence: IT)
  Receive Date: 20200701
  Receipt Date: 20200709
  Transmission Date: 20201103
  Serious: Yes (Hospitalization)
  Sender: FDA-Public Use
  Company Number: IT-TEVA-2020-IT-1792941

PATIENT
  Age: 80 Year
  Sex: Male

DRUGS (7)
  1. TRITTICO 75 MG COMPRESSE A RILASCIO PROLUNGATO [Suspect]
     Active Substance: TRAZODONE HYDROCHLORIDE
     Dosage: 0.33 DOSAGE FORMS
     Route: 048
     Dates: start: 20200101, end: 20200316
  2. KANRENOL [Concomitant]
     Active Substance: CANRENOATE POTASSIUM
  3. ATORVASTATIN [Concomitant]
     Active Substance: ATORVASTATIN
  4. ASCRIPTIN [Suspect]
     Active Substance: ASPIRIN
     Dosage: 1 DOSAGE FORMS
     Route: 048
     Dates: start: 20200101, end: 20200316
  5. FUROSEMIDE. [Concomitant]
     Active Substance: FUROSEMIDE
  6. LANSOPRAZOLE. [Suspect]
     Active Substance: LANSOPRAZOLE
     Route: 065
     Dates: start: 20200101, end: 20200316
  7. ARIXTRA [Suspect]
     Active Substance: FONDAPARINUX SODIUM
     Indication: DIABETES MELLITUS
     Dosage: 1 DOSAGE FORMS
     Route: 058
     Dates: start: 20200101, end: 20200316

REACTIONS (2)
  - Presyncope [Recovering/Resolving]
  - Anaemia [Recovering/Resolving]

NARRATIVE: CASE EVENT DATE: 20200316
